FAERS Safety Report 22142239 (Version 5)
Quarter: 2023Q2

REPORT INFORMATION
  Report Type: Spontaneous
  Country: JP (occurrence: JP)
  Receive Date: 20230327
  Receipt Date: 20230518
  Transmission Date: 20230721
  Serious: Yes (Hospitalization, Other)
  Sender: FDA-Public Use
  Company Number: JP-PFIZER INC-202300129487

PATIENT
  Age: 47 Year
  Sex: Male
  Weight: 57 kg

DRUGS (11)
  1. AZITHROMYCIN DIHYDRATE [Suspect]
     Active Substance: AZITHROMYCIN DIHYDRATE
     Indication: Pneumonia legionella
     Dosage: 500 MG, 1X/DAY
     Route: 041
     Dates: start: 20230307, end: 20230311
  2. AZITHROMYCIN [Suspect]
     Active Substance: AZITHROMYCIN
     Indication: Pneumonia legionella
     Dosage: 500 MG, 1X/DAY
     Route: 048
     Dates: start: 20230312, end: 20230320
  3. LEVOFLOXACIN [Suspect]
     Active Substance: LEVOFLOXACIN
     Indication: Pneumonia legionella
     Dosage: 750 MG, 1X/DAY
     Route: 041
     Dates: start: 20230307, end: 20230311
  4. LEVOFLOXACIN [Suspect]
     Active Substance: LEVOFLOXACIN
     Indication: Pneumonia legionella
     Dosage: 750 MG, 1X/DAY
     Route: 048
     Dates: start: 20230312, end: 20230320
  5. ACETAMINOPHEN [Concomitant]
     Active Substance: ACETAMINOPHEN
     Indication: Pyrexia
     Dosage: 1000 MG, AS NEEDED
     Route: 041
     Dates: start: 20230307
  6. ACETAMINOPHEN [Concomitant]
     Active Substance: ACETAMINOPHEN
     Indication: Pain
  7. DIETARY SUPPLEMENT\PROBIOTICS [Concomitant]
     Active Substance: DIETARY SUPPLEMENT\PROBIOTICS NOS
     Indication: Dysbiosis
     Dosage: 1 G, 3X/DAY
     Route: 048
     Dates: start: 20230308, end: 20230403
  8. MIYA-BM [Concomitant]
     Active Substance: CLOSTRIDIUM BUTYRICUM SPORES STRAIN M-55
     Indication: Dysbiosis
     Dosage: 1 G, 3X/DAY
     Route: 048
     Dates: start: 20230308, end: 20230403
  9. DEXTROSE\SODIUM CHLORIDE\SODIUM LACTATE [Concomitant]
     Active Substance: DEXTROSE\SODIUM CHLORIDE\SODIUM LACTATE
     Indication: Electrolyte imbalance
     Dosage: 500 ML, 4X/DAY
     Route: 041
     Dates: start: 20230308, end: 20230326
  10. VONOPRAZAN FUMARATE [Concomitant]
     Active Substance: VONOPRAZAN FUMARATE
     Indication: Gastric ulcer
     Dosage: 10 MG, 1X/DAY
     Route: 048
     Dates: start: 20230307, end: 20230320
  11. URSODIOL [Concomitant]
     Active Substance: URSODIOL
     Indication: Hepatic function abnormal
     Dosage: 200 MG, 3X/DAY
     Route: 048
     Dates: start: 20230308

REACTIONS (9)
  - Ileus paralytic [Recovering/Resolving]
  - Flatulence [Unknown]
  - Pancreatitis [Unknown]
  - Intestinal malrotation [Unknown]
  - Large intestine perforation [Unknown]
  - Abdominal cavity drainage [Unknown]
  - Abdominal distension [Unknown]
  - Abdominal pain [Unknown]
  - Blood pressure decreased [Unknown]

NARRATIVE: CASE EVENT DATE: 20230301
